FAERS Safety Report 8084233-1 (Version None)
Quarter: 2012Q1

REPORT INFORMATION
  Report Type: 
  Country: None (occurrence: None)
  Receive Date: 20120128
  Receipt Date: 20110307
  Transmission Date: 20120608
  Serious: No
  Sender: FDA-Public Use
  Company Number: US-ABBOTT-11P-163-0709632-00

PATIENT
  Age: 57 Year
  Sex: Male

DRUGS (4)
  1. HUMIRA [Suspect]
     Indication: COLITIS ULCERATIVE
     Dates: start: 20101101
  2. METHOTREXATE [Concomitant]
     Indication: COLITIS ULCERATIVE
     Dosage: FOR 4 WEEKS
  3. AZATHIOPRINE [Suspect]
     Indication: COLITIS ULCERATIVE
  4. PREDNISONE TAB [Concomitant]
     Indication: COLITIS ULCERATIVE
     Route: 048

REACTIONS (2)
  - COLITIS ULCERATIVE [None]
  - LIVER DISORDER [None]
